FAERS Safety Report 23651374 (Version 4)
Quarter: 2025Q2

REPORT INFORMATION
  Report Type: Report from Study
  Country: CA (occurrence: CA)
  Receive Date: 20240320
  Receipt Date: 20250507
  Transmission Date: 20250717
  Serious: Yes (Other)
  Sender: TAKEDA
  Company Number: CA-TAKEDA-2023TUS088969

PATIENT
  Age: 31 Year
  Sex: Female

DRUGS (9)
  1. VEDOLIZUMAB [Suspect]
     Active Substance: VEDOLIZUMAB
     Indication: Crohn^s disease
  2. VEDOLIZUMAB [Suspect]
     Active Substance: VEDOLIZUMAB
  3. VEDOLIZUMAB [Suspect]
     Active Substance: VEDOLIZUMAB
     Dosage: 300 MILLIGRAM, Q4WEEKS
     Dates: start: 20240402
  4. VEDOLIZUMAB [Suspect]
     Active Substance: VEDOLIZUMAB
     Dosage: 300 MILLIGRAM, Q4WEEKS
  5. BUDESONIDE [Concomitant]
     Active Substance: BUDESONIDE
  6. Salofalk [Concomitant]
  7. MESALAMINE [Concomitant]
     Active Substance: MESALAMINE
  8. BISOPROLOL [Concomitant]
     Active Substance: BISOPROLOL
  9. SYNTHROID [Concomitant]
     Active Substance: LEVOTHYROXINE SODIUM

REACTIONS (15)
  - Crohn^s disease [Unknown]
  - Hypothyroidism [Unknown]
  - Urinary tract infection [Unknown]
  - Anxiety [Unknown]
  - Mouth ulceration [Unknown]
  - Off label use [Unknown]
  - Dehydration [Unknown]
  - Pharyngeal mass [Recovered/Resolved]
  - Stomatitis [Unknown]
  - Pharyngeal ulceration [Not Recovered/Not Resolved]
  - Viral infection [Unknown]
  - Thyroiditis [Unknown]
  - Hypophagia [Unknown]
  - Oropharyngeal pain [Not Recovered/Not Resolved]
  - Pyrexia [Unknown]

NARRATIVE: CASE EVENT DATE: 20240402
